FAERS Safety Report 15773241 (Version 2)
Quarter: 2019Q1

REPORT INFORMATION
  Report Type: Report from Study
  Country: MX (occurrence: MX)
  Receive Date: 20181228
  Receipt Date: 20190124
  Transmission Date: 20190417
  Serious: Yes (Other)
  Sender: FDA-Public Use
  Company Number: PHHY2018MX062784

PATIENT
  Age: 41 Year
  Sex: Female
  Weight: 63 kg

DRUGS (4)
  1. COSENTYX [Suspect]
     Active Substance: SECUKINUMAB
     Indication: ANKYLOSING SPONDYLITIS
     Dosage: 150 MG, QW FOR ONE MONTH
     Route: 058
     Dates: start: 20180506
  2. COSENTYX [Suspect]
     Active Substance: SECUKINUMAB
     Dosage: 150 MG, QMO
     Route: 058
  3. COSENTYX [Suspect]
     Active Substance: SECUKINUMAB
     Dosage: 150 MG, QMO
     Route: 058
     Dates: start: 201807, end: 201807
  4. TRAMADOL. [Concomitant]
     Active Substance: TRAMADOL
     Indication: PAIN
     Dosage: 100 MG, QHS
     Route: 048

REACTIONS (9)
  - Herpes virus infection [Unknown]
  - Discomfort [Unknown]
  - Diarrhoea haemorrhagic [Recovered/Resolved]
  - Drug ineffective [Not Recovered/Not Resolved]
  - Uveitis [Recovered/Resolved]
  - Inappropriate schedule of product administration [Unknown]
  - Intraocular pressure increased [Recovered/Resolved]
  - Gastric ulcer [Recovering/Resolving]
  - Inflammation [Unknown]

NARRATIVE: CASE EVENT DATE: 201805
